FAERS Safety Report 16055880 (Version 3)
Quarter: 2019Q2

REPORT INFORMATION
  Report Type: Spontaneous
  Country: JP (occurrence: JP)
  Receive Date: 20190311
  Receipt Date: 20190404
  Transmission Date: 20190711
  Serious: Yes (Death)
  Sender: FDA-Public Use
  Company Number: JP-ROCHE-2280951

PATIENT
  Age: 70 Year
  Sex: Male
  Weight: 68 kg

DRUGS (6)
  1. BETAMETHASONE. [Concomitant]
     Active Substance: BETAMETHASONE
     Dosage: DOSAGE IS UNCERTAIN.
     Route: 048
     Dates: start: 20190218, end: 20190228
  2. TAKECAB [Concomitant]
     Active Substance: VONOPRAZAN FUMURATE
     Dosage: DOSAGE IS UNCERTAIN.
     Route: 065
     Dates: start: 20160622, end: 20190228
  3. TAMSULOSIN HYDROCHLORIDE. [Concomitant]
     Active Substance: TAMSULOSIN HYDROCHLORIDE
     Dosage: DOSAGE IS UNCERTAIN.
     Route: 065
     Dates: start: 20190108, end: 20190228
  4. LYRICA [Concomitant]
     Active Substance: PREGABALIN
     Dosage: DOSAGE IS UNCERTAIN.
     Route: 048
     Dates: start: 20160702, end: 20190228
  5. CALONAL [Concomitant]
     Active Substance: ACETAMINOPHEN
     Dosage: DOSAGE IS UNCERTAIN.
     Route: 065
     Dates: start: 20190221, end: 20190228
  6. TECENTRIQ [Suspect]
     Active Substance: ATEZOLIZUMAB
     Indication: NON-SMALL CELL LUNG CANCER
     Route: 041
     Dates: start: 20190228, end: 20190228

REACTIONS (4)
  - Dyspnoea [Fatal]
  - Blood pressure decreased [Fatal]
  - Decreased appetite [Not Recovered/Not Resolved]
  - Disease progression [Fatal]

NARRATIVE: CASE EVENT DATE: 20190228
